FAERS Safety Report 6823041-3 (Version None)
Quarter: 2010Q3

REPORT INFORMATION
  Report Type: 
  Country: None (occurrence: None)
  Receive Date: 20100708
  Receipt Date: 20100702
  Transmission Date: 20110219
  Serious: Yes (Life-Threatening, Hospitalization)
  Sender: FDA-Public Use
  Company Number: B0660662A

PATIENT
  Sex: Male

DRUGS (8)
  1. AUGMENTIN '125' [Suspect]
     Indication: ANTIBIOTIC PROPHYLAXIS
     Route: 042
     Dates: start: 20100312, end: 20100312
  2. SUFENTA PRESERVATIVE FREE [Suspect]
     Dosage: 15MCG SINGLE DOSE
     Route: 042
     Dates: start: 20100312, end: 20100312
  3. DIPRIVAN [Suspect]
     Dosage: 200MG SINGLE DOSE
     Route: 042
     Dates: start: 20100312, end: 20100312
  4. SEVORANE [Suspect]
     Route: 055
     Dates: start: 20100312, end: 20100312
  5. AMAREL [Concomitant]
     Route: 065
  6. LEVEMIR [Concomitant]
     Route: 065
  7. CREON [Concomitant]
     Indication: PANCREATITIS
     Dosage: 25000UNIT FOUR TIMES PER DAY
     Route: 065
  8. TOPALGIC (FRANCE) [Concomitant]
     Route: 065

REACTIONS (4)
  - ANAPHYLACTIC SHOCK [None]
  - BRONCHOSPASM [None]
  - RASH GENERALISED [None]
  - SHOCK [None]
